FAERS Safety Report 20056442 (Version 1)
Quarter: 2021Q4

REPORT INFORMATION
  Report Type: Spontaneous
  Country: US (occurrence: None)
  Receive Date: 20211111
  Receipt Date: 20211111
  Transmission Date: 20220303
  Serious: No
  Sender: FDA-Public Use
  Company Number: US-Hikma Pharmaceuticals USA Inc.-US-H14001-21-03116

PATIENT
  Sex: Female
  Weight: 126.55 kg

DRUGS (1)
  1. DIPYRIDAMOLE [Suspect]
     Active Substance: DIPYRIDAMOLE
     Indication: Cardiac pharmacologic stress test
     Dosage: 60 MG DILUTED IN 66 CC SYRINGE NORMAL SALINE
     Route: 042

REACTIONS (1)
  - Pain in extremity [Unknown]
